FAERS Safety Report 4273635-7 (Version None)
Quarter: 2004Q1

REPORT INFORMATION
  Report Type: 
  Country: None (occurrence: None)
  Receive Date: 20040119
  Receipt Date: 20040114
  Transmission Date: 20041129
  Serious: Yes (Hospitalization)
  Sender: FDA-Public Use
  Company Number: WAES 0401DEU00056

PATIENT
  Age: 46 Year
  Sex: Female
  Weight: 89 kg

DRUGS (6)
  1. FOSAMAX [Concomitant]
     Indication: OSTEOPOROSIS
     Route: 048
     Dates: start: 20030101
  2. CALCIUM CARBONATE AND CHOLECALCIFEROL [Concomitant]
     Indication: OSTEOPOROSIS
     Route: 048
     Dates: start: 20030101
  3. INSULIN HUMAN, ISOPHANE [Concomitant]
     Indication: DIABETES MELLITUS NON-INSULIN-DEPENDENT
     Route: 058
     Dates: start: 19970101
  4. INSULIN, NEUTRAL [Concomitant]
     Indication: DIABETES MELLITUS NON-INSULIN-DEPENDENT
     Route: 058
     Dates: start: 19970101
  5. VIOXX [Suspect]
     Indication: PAIN
     Route: 048
     Dates: start: 20030301, end: 20030822
  6. VIOXX [Suspect]
     Route: 048
     Dates: start: 20030825

REACTIONS (4)
  - BLOOD CALCIUM DECREASED [None]
  - GASTRITIS [None]
  - HYPOKALAEMIA [None]
  - VOMITING [None]
